FAERS Safety Report 17062420 (Version 1)
Quarter: 2019Q4

REPORT INFORMATION
  Report Type: Spontaneous
  Country: CN (occurrence: CN)
  Receive Date: 20191122
  Receipt Date: 20191122
  Transmission Date: 20200122
  Serious: Yes (Life-Threatening)
  Sender: FDA-Public Use
  Company Number: CN-BAXTER-2019BAX023451

PATIENT
  Age: 64 Year
  Sex: Female
  Weight: 60 kg

DRUGS (9)
  1. PIRARUBICIN [Suspect]
     Active Substance: PIRARUBICIN
     Indication: NEUROFIBROSARCOMA RECURRENT
     Dosage: PIRARUBICIN + 5% GLUCOSE INJECTION 50ML
     Route: 041
     Dates: start: 20190921, end: 20190922
  2. HOLOXAN [Suspect]
     Active Substance: IFOSFAMIDE
     Indication: NEUROFIBROSARCOMA RECURRENT
     Dosage: IFOSFAMIDE + 0.9% SODIUM CHLORIDE INJECTION 250ML
     Route: 041
     Dates: start: 20190921, end: 20190923
  3. HOLOXAN [Suspect]
     Active Substance: IFOSFAMIDE
     Indication: METASTASES TO LUNG
  4. PIRARUBICIN [Suspect]
     Active Substance: PIRARUBICIN
     Indication: METASTASES TO LUNG
  5. ENDOSTAR [Suspect]
     Active Substance: ENDOSTATIN
     Indication: METASTASES TO LUNG
  6. 5% GLUCOSE  INJECTION [Suspect]
     Active Substance: DEXTROSE
     Indication: MEDICATION DILUTION
     Dosage: PIRARUBICIN FOR INJECTION 40 MG + 5% GLUCOSE
     Route: 041
     Dates: start: 20190921, end: 20190922
  7. ENDOSTAR [Suspect]
     Active Substance: ENDOSTATIN
     Indication: NEUROFIBROSARCOMA RECURRENT
     Dosage: RECOMBINANT HUMAN ENDOSTATIN + 0.9% SODIUM CHLORIDE INJECTION 500ML
     Route: 041
     Dates: start: 20190920, end: 20191003
  8. 0.9% SODIUM CHLORIDE INJECTION [Suspect]
     Active Substance: SODIUM CHLORIDE
     Indication: MEDICATION DILUTION
     Dosage: IFOSFAMIDE FOR INJECTION 3G + 0.9% SODIUM CHLORIDE
     Route: 041
     Dates: start: 20190921, end: 20190923
  9. 0.9% SODIUM CHLORIDE INJECTION [Suspect]
     Active Substance: SODIUM CHLORIDE
     Dosage: RECOMBINANT HUMAN ENDOSTATIN 15 MG + 0.9% SODIUM CHLORIDE
     Route: 041
     Dates: start: 20190920, end: 20191003

REACTIONS (2)
  - White blood cell count decreased [Not Recovered/Not Resolved]
  - Granulocytopenia [Not Recovered/Not Resolved]

NARRATIVE: CASE EVENT DATE: 20191003
